FAERS Safety Report 5786617-0 (Version None)
Quarter: 2008Q2

REPORT INFORMATION
  Report Type: 
  Country: None (occurrence: None)
  Receive Date: 20080624
  Receipt Date: 20080612
  Transmission Date: 20081010
  Serious: Yes (Hospitalization)
  Sender: FDA-Public Use
  Company Number: FR-PFIZER INC-2008049879

PATIENT
  Age: 16 Year
  Sex: Male

DRUGS (5)
  1. ALDACTONE [Suspect]
     Indication: HYPERTENSION
     Route: 048
  2. RAMIPRIL [Suspect]
     Indication: HYPERTENSION
     Route: 048
  3. BISOPROLOL FUMARATE [Suspect]
     Indication: CARDIAC FAILURE
     Route: 048
  4. LASIX [Suspect]
     Indication: OEDEMA
     Route: 048
  5. PREVISCAN [Suspect]
     Route: 048

REACTIONS (1)
  - PANCREATITIS ACUTE [None]
